FAERS Safety Report 17296352 (Version 3)
Quarter: 2021Q2

REPORT INFORMATION
  Report Type: Spontaneous
  Country: AU (occurrence: AU)
  Receive Date: 20200121
  Receipt Date: 20210430
  Transmission Date: 20210716
  Serious: Yes (Hospitalization)
  Sender: FDA-Public Use
  Company Number: AU-TASMAN PHARMA, INC.-2020TSM00003

PATIENT
  Sex: Female
  Weight: 95.2 kg

DRUGS (51)
  1. CLOZAPINE. [Suspect]
     Active Substance: CLOZAPINE
     Dosage: 400 MG
     Dates: start: 20200106, end: 20200115
  2. CLOZAPINE. [Suspect]
     Active Substance: CLOZAPINE
     Dosage: 300 MG
     Dates: start: 20170509, end: 20170514
  3. CLOZAPINE. [Suspect]
     Active Substance: CLOZAPINE
     Dosage: 300 MG
     Dates: start: 20170529, end: 20170605
  4. CLOZAPINE. [Suspect]
     Active Substance: CLOZAPINE
     Dosage: 400 MG
     Dates: start: 20170725, end: 20170911
  5. CLOZAPINE. [Suspect]
     Active Substance: CLOZAPINE
     Dosage: 250 MG
     Dates: start: 20180417, end: 20190402
  6. CLOZAPINE. [Suspect]
     Active Substance: CLOZAPINE
     Dosage: 200 MG
     Dates: start: 20190514, end: 20190522
  7. CLOZAPINE. [Suspect]
     Active Substance: CLOZAPINE
     Dosage: 300 MG
     Dates: start: 20190605, end: 20190722
  8. CLOZAPINE. [Suspect]
     Active Substance: CLOZAPINE
     Dosage: 300 MG
     Dates: start: 20200218, end: 20200601
  9. CLOZAPINE. [Suspect]
     Active Substance: CLOZAPINE
     Dosage: 225 MG
     Dates: start: 20160929, end: 20161010
  10. CLOZAPINE. [Suspect]
     Active Substance: CLOZAPINE
     Dosage: 400 MG
     Dates: start: 20191010, end: 20191202
  11. CLOZAPINE. [Suspect]
     Active Substance: CLOZAPINE
     Dosage: 225 MG
     Dates: start: 20161121, end: 20170214
  12. CLOZAPINE. [Suspect]
     Active Substance: CLOZAPINE
     Dosage: 100 MG
     Dates: start: 20190409, end: 20190415
  13. CLOZAPINE. [Suspect]
     Active Substance: CLOZAPINE
     Dosage: 400 MG
     Dates: start: 20191203, end: 20200105
  14. CLOZAPINE. [Suspect]
     Active Substance: CLOZAPINE
     Dosage: 400 MG
     Dates: start: 20200602, end: 20200909
  15. CLOZAPINE. [Suspect]
     Active Substance: CLOZAPINE
     Dosage: 450 MG
     Dates: start: 20201215, end: 20210325
  16. CLOZAPINE. [Suspect]
     Active Substance: CLOZAPINE
     Dosage: 225 MG
     Dates: start: 20161011, end: 20161102
  17. CLOZAPINE. [Suspect]
     Active Substance: CLOZAPINE
     Dosage: 300 MG
     Dates: start: 20170606, end: 20170626
  18. CLOZAPINE. [Suspect]
     Active Substance: CLOZAPINE
     Dosage: 200 MG
     Dates: start: 20190503, end: 20190513
  19. CLOZAPINE. [Suspect]
     Active Substance: CLOZAPINE
     Dosage: 300 MG
     Dates: start: 20170321, end: 20170403
  20. CLOZAPINE. [Suspect]
     Active Substance: CLOZAPINE
     Dosage: 300 MG
     Dates: start: 20170501, end: 20170508
  21. CLOZAPINE. [Suspect]
     Active Substance: CLOZAPINE
     Dosage: 350 MG
     Dates: start: 20170718, end: 20170724
  22. CLOZAPINE. [Suspect]
     Active Substance: CLOZAPINE
     Dosage: 25 MG
     Dates: start: 20190403, end: 20190408
  23. CLOZAPINE. [Suspect]
     Active Substance: CLOZAPINE
     Dosage: 50 MG
     Dates: start: 20190918, end: 20190924
  24. CLOZAPINE. [Suspect]
     Active Substance: CLOZAPINE
     Dosage: 175 MG
     Dates: start: 20170314, end: 20170320
  25. CLOZAPINE. [Suspect]
     Active Substance: CLOZAPINE
     Dosage: 300 MG
     Dates: start: 20170515, end: 20170521
  26. CLOZAPINE. [Suspect]
     Active Substance: CLOZAPINE
     Dosage: 400 MG
     Dates: start: 20201008, end: 20201214
  27. CLOZAPINE. [Suspect]
     Active Substance: CLOZAPINE
     Dosage: 450 MG
     Dates: start: 20210413
  28. CLOZAPINE. [Suspect]
     Active Substance: CLOZAPINE
     Dosage: 300 MG
     Dates: start: 20200121, end: 20200217
  29. CLOZAPINE. [Suspect]
     Active Substance: CLOZAPINE
     Dosage: 300 MG
     Dates: start: 20170404, end: 20170430
  30. CLOZAPINE. [Suspect]
     Active Substance: CLOZAPINE
     Dosage: 350 MG
     Dates: start: 20190730, end: 20190917
  31. CLOZAPINE. [Suspect]
     Active Substance: CLOZAPINE
     Dosage: 300 MG
     Dates: start: 20190925, end: 20191009
  32. CLOZAPINE. [Suspect]
     Active Substance: CLOZAPINE
     Dosage: 12.5 MG
     Dates: start: 20170627, end: 20170710
  33. CLOZAPINE. [Suspect]
     Active Substance: CLOZAPINE
     Dosage: 75 MG
     Dates: start: 20170711, end: 20170717
  34. CLOZAPINE. [Suspect]
     Active Substance: CLOZAPINE
     Dosage: 200 MG
     Dates: start: 20180409, end: 20180416
  35. CLOZAPINE. [Suspect]
     Active Substance: CLOZAPINE
     Dosage: 225 MG
     Dates: start: 20190523, end: 20190527
  36. CLOZAPINE. [Suspect]
     Active Substance: CLOZAPINE
     Dosage: 250 MG
     Dates: start: 20190528, end: 20190604
  37. CLOZAPINE. [Suspect]
     Active Substance: CLOZAPINE
     Dosage: 150 MG
     Dates: start: 20200924, end: 20200930
  38. CLOZAPINE. [Suspect]
     Active Substance: CLOZAPINE
     Dosage: 100 MG
     Dates: start: 20160915, end: 20160921
  39. CLOZAPINE. [Suspect]
     Active Substance: CLOZAPINE
     Dosage: 200 MG
     Dates: start: 20160922, end: 20160928
  40. CLOZAPINE. [Suspect]
     Active Substance: CLOZAPINE
     Dosage: 100 MG
     Dates: start: 20200116, end: 20200120
  41. CLOZAPINE. [Suspect]
     Active Substance: CLOZAPINE
     Dosage: 400 MG
     Dates: start: 20170912, end: 20180402
  42. CLOZAPINE. [Suspect]
     Active Substance: CLOZAPINE
     Dosage: 75 MG
     Dates: start: 20170307, end: 20170313
  43. CLOZAPINE. [Suspect]
     Active Substance: CLOZAPINE
     Dosage: 100 MG
     Dates: start: 20180403, end: 20180408
  44. CLOZAPINE. [Suspect]
     Active Substance: CLOZAPINE
     Dosage: 200 MG
     Dates: start: 20190423, end: 20190502
  45. CLOZAPINE. [Suspect]
     Active Substance: CLOZAPINE
     Dosage: 350 MG
     Dates: start: 20190723, end: 20190729
  46. CLOZAPINE. [Suspect]
     Active Substance: CLOZAPINE
     Dosage: 12.5 MG
     Dates: start: 20161103, end: 20161108
  47. CLOZAPINE. [Suspect]
     Active Substance: CLOZAPINE
     Dosage: 300 MG
     Dates: start: 20170522, end: 20170528
  48. CLOZAPINE. [Suspect]
     Active Substance: CLOZAPINE
     Dosage: 175 MG
     Dates: start: 20190416, end: 20190422
  49. CLOZAPINE. [Suspect]
     Active Substance: CLOZAPINE
     Dosage: 50 MG
     Dates: start: 20200916, end: 20200923
  50. CLOZAPINE. [Suspect]
     Active Substance: CLOZAPINE
     Dosage: 175 MG
     Dates: start: 20161109, end: 20161120
  51. CLOZAPINE. [Suspect]
     Active Substance: CLOZAPINE
     Dosage: 250 MG
     Dates: start: 20201001, end: 20201007

REACTIONS (5)
  - Somnolence [Unknown]
  - Schizoaffective disorder [Unknown]
  - Salivary hypersecretion [Unknown]
  - Treatment noncompliance [Recovered/Resolved]
  - Sedation [Unknown]

NARRATIVE: CASE EVENT DATE: 20161116
